FAERS Safety Report 4364017-8 (Version None)
Quarter: 2004Q2

REPORT INFORMATION
  Report Type: 
  Country: None (occurrence: None)
  Receive Date: 20040525
  Receipt Date: 20030310
  Transmission Date: 20050107
  Serious: Yes (Hospitalization, Other)
  Sender: FDA-Public Use
  Company Number: 200312251US

PATIENT
  Sex: Female
  Weight: 46.8 kg

DRUGS (25)
  1. ARAVA [Suspect]
     Indication: JUVENILE ARTHRITIS
     Dates: start: 20000501, end: 20020201
  2. PROTONIX [Suspect]
     Dosage: DOSE: UNKNOWN
  3. METHOTREXATE [Suspect]
     Dosage: DOSE: UNKNOWN
     Dates: start: 20010801
  4. IMDUR [Concomitant]
     Dosage: DOSE: UNKNOWN
  5. OXYCONTIN [Concomitant]
  6. OXYCODONE [Concomitant]
  7. PEPCID [Concomitant]
     Route: 048
  8. INDOCIN [Concomitant]
  9. PREDNISONE [Concomitant]
  10. K-DUR 10 [Concomitant]
  11. ACETAMINOPHEN [Concomitant]
  12. DIFLUCAN [Concomitant]
     Route: 042
  13. METHYLPREDNISOLONE [Concomitant]
     Route: 042
  14. PREVACID [Concomitant]
  15. INDOMETHACIN [Concomitant]
     Route: 048
  16. FOLIC ACID [Concomitant]
     Route: 048
  17. FOSAMAX [Concomitant]
     Route: 048
  18. NIFEREX [Concomitant]
     Route: 048
  19. OSCAL [Concomitant]
  20. MULTIVITAMINS, PLAIN [Concomitant]
     Dosage: DOSE: UNK
  21. PLAQUENIL [Concomitant]
     Dosage: DOSE: UNK
  22. GOLD [Concomitant]
     Dosage: DOSE: UNK
  23. CYCLOSPORINE [Concomitant]
     Dosage: DOSE: UNK
  24. ENBREL [Concomitant]
     Dosage: DOSE: UNK
  25. IMURAN [Concomitant]
     Dosage: DOSE: UNK

REACTIONS (25)
  - ANAEMIA [None]
  - ARTHRALGIA [None]
  - ARTHRITIS INFECTIVE [None]
  - BETA HAEMOLYTIC STREPTOCOCCAL INFECTION [None]
  - BLOOD ALKALINE PHOSPHATASE INCREASED [None]
  - CATARACT [None]
  - CHEST DISCOMFORT [None]
  - COLITIS [None]
  - COUGH [None]
  - DYSPNOEA [None]
  - ELECTROLYTE IMBALANCE [None]
  - HEPATIC FAILURE [None]
  - HYPERTENSION [None]
  - MALNUTRITION [None]
  - NAUSEA [None]
  - OEDEMA [None]
  - ORTHOPNOEA [None]
  - PHARYNGITIS STREPTOCOCCAL [None]
  - PLATELET COUNT INCREASED [None]
  - PYREXIA [None]
  - RENAL FAILURE ACUTE [None]
  - SKIN REACTION [None]
  - VOMITING [None]
  - WEIGHT INCREASED [None]
  - WHITE BLOOD CELL COUNT INCREASED [None]
